FAERS Safety Report 6366437-9 (Version None)
Quarter: 2009Q3

REPORT INFORMATION
  Report Type: 
  Country: None (occurrence: None)
  Receive Date: 20090921
  Receipt Date: 20090911
  Transmission Date: 20100115
  Serious: Yes (Other)
  Sender: FDA-Public Use
  Company Number: JP-ASTRAZENECA-2009SE07065

PATIENT
  Age: 58 Year
  Sex: Female

DRUGS (5)
  1. SEROQUEL [Suspect]
     Indication: SCHIZOPHRENIA
     Route: 048
     Dates: start: 20081007, end: 20090807
  2. LEVOTOMIN [Suspect]
     Indication: SCHIZOPHRENIA
     Route: 048
     Dates: start: 20090703, end: 20090729
  3. BARNETIL [Concomitant]
     Dates: start: 19911216, end: 20081007
  4. RISPERIDONE [Concomitant]
     Dates: start: 20080722, end: 20090123
  5. POLARAMINE [Concomitant]
     Dates: start: 20020829, end: 20090717

REACTIONS (1)
  - GASTROINTESTINAL HYPOMOTILITY [None]
